FAERS Safety Report 6190152-8 (Version None)
Quarter: 2009Q2

REPORT INFORMATION
  Report Type: 
  Country: None (occurrence: None)
  Receive Date: 20090514
  Receipt Date: 20090511
  Transmission Date: 20091009
  Serious: Yes (Other)
  Sender: FDA-Public Use
  Company Number: AU-ASTRAZENECA-2009AP02918

PATIENT
  Age: 30 Year
  Sex: Female

DRUGS (1)
  1. RHINOCORT [Suspect]
     Indication: VASOMOTOR RHINITIS
     Route: 045
     Dates: start: 20090414, end: 20090426

REACTIONS (6)
  - DERMATITIS BULLOUS [None]
  - DRUG EXPOSURE DURING PREGNANCY [None]
  - HYPOAESTHESIA FACIAL [None]
  - NASAL INFLAMMATION [None]
  - NASAL OEDEMA [None]
  - RASH [None]
